FAERS Safety Report 10696545 (Version 1)
Quarter: 2015Q1

REPORT INFORMATION
  Report Type: Spontaneous
  Country: US (occurrence: US)
  Receive Date: 20150107
  Receipt Date: 20150107
  Transmission Date: 20150721
  Serious: No
  Sender: FDA-Public Use
  Company Number: US-BRISTOL-MYERS SQUIBB COMPANY-BMS-2014-005875

PATIENT
  Sex: Male
  Weight: 97.5 kg

DRUGS (6)
  1. PREVAX [Concomitant]
     Indication: THROMBOSIS PROPHYLAXIS
     Route: 065
  2. BENCORT                            /00008504/ [Concomitant]
     Route: 065
  3. METOPROLOL [Concomitant]
     Active Substance: METOPROLOL
     Route: 065
  4. BYDUREON [Suspect]
     Active Substance: EXENATIDE
     Indication: TYPE 2 DIABETES MELLITUS
     Dosage: 2 MG, UNK
     Route: 058
  5. METFORMIN [Concomitant]
     Active Substance: METFORMIN HYDROCHLORIDE
     Route: 065
  6. LISINOPRIL. [Concomitant]
     Active Substance: LISINOPRIL
     Route: 065

REACTIONS (4)
  - Drug dose omission [Unknown]
  - Injection site extravasation [Unknown]
  - Underdose [Unknown]
  - Injection site pain [Unknown]
